FAERS Safety Report 20060604 (Version 1)
Quarter: 2021Q4

REPORT INFORMATION
  Report Type: Spontaneous
  Country: IN (occurrence: IN)
  Receive Date: 20211112
  Receipt Date: 20211112
  Transmission Date: 20220303
  Serious: Yes (Hospitalization, Other)
  Sender: FDA-Public Use
  Company Number: IN-LUPIN PHARMACEUTICALS INC.-2021-22038

PATIENT
  Age: 32 Year
  Sex: Female

DRUGS (3)
  1. TRIAMCINOLONE ACETONIDE [Suspect]
     Active Substance: TRIAMCINOLONE ACETONIDE
     Indication: Optic neuritis
     Dosage: 40 MILLIGRAM, INJECTION
     Route: 031
  2. CYCLOPHOSPHAMIDE [Suspect]
     Active Substance: CYCLOPHOSPHAMIDE
     Indication: Pemphigus
     Dosage: 200 MILLIGRAM
     Route: 065
  3. PREDNISOLONE [Suspect]
     Active Substance: PREDNISOLONE
     Indication: Pemphigus
     Dosage: 40 MILLIGRAM
     Route: 065

REACTIONS (5)
  - Retinitis [Recovering/Resolving]
  - Vasculitis [Recovering/Resolving]
  - Cytomegalovirus infection [Recovering/Resolving]
  - Herpes simplex [Recovering/Resolving]
  - Vitreous detachment [Recovering/Resolving]
